FAERS Safety Report 7501515-X (Version None)
Quarter: 2011Q2

REPORT INFORMATION
  Report Type: 
  Country: None (occurrence: None)
  Receive Date: 20110524
  Receipt Date: 20110519
  Transmission Date: 20111010
  Serious: Yes (Hospitalization)
  Sender: FDA-Public Use
  Company Number: PHHO2011US08726

PATIENT
  Sex: Male
  Weight: 80 kg

DRUGS (22)
  1. AFINITOR [Suspect]
     Indication: BLADDER CANCER
     Dosage: 5 MG, QD
     Route: 048
     Dates: start: 20110113, end: 20110519
  2. MAGNESIUM OXIDE [Concomitant]
  3. METFORMIN HCL [Concomitant]
  4. GABAPENTIN [Concomitant]
  5. OXYCONTIN [Concomitant]
  6. SIMVASTATIN [Concomitant]
  7. DOCUSATE SODIUM [Concomitant]
  8. SENNOSIDES A+B [Concomitant]
  9. LOPERAMIDE HYDROCHLORIDE [Concomitant]
  10. METOPROLOL TARTRATE [Concomitant]
  11. DALTEPARIN SODIUM [Concomitant]
  12. MIRALAX [Concomitant]
  13. NEUTRA-PHOS [Concomitant]
  14. TAMSULOSIN HCL [Concomitant]
  15. ATIVAN [Concomitant]
  16. COMPAZINE [Concomitant]
  17. FLUOXETINE HYDROCHLORIDE [Concomitant]
  18. IBUPROFEN [Concomitant]
  19. OXYCODONE HCL [Concomitant]
  20. PAZOPANIB [Suspect]
     Indication: BLADDER CANCER
     Dosage: 400 MG, QD
     Route: 048
     Dates: start: 20110113, end: 20110519
  21. ASPIRIN [Concomitant]
  22. CALCIUM WITH VITAMIN D [Concomitant]

REACTIONS (1)
  - PNEUMOTHORAX [None]
